FAERS Safety Report 20612231 (Version 1)
Quarter: 2022Q1

REPORT INFORMATION
  Report Type: Spontaneous
  Country: US (occurrence: US)
  Receive Date: 20220318
  Receipt Date: 20220318
  Transmission Date: 20220423
  Serious: Yes (Death, Other)
  Sender: FDA-Public Use
  Company Number: US-ALVOGEN-2022-ALVOGEN-118955

PATIENT
  Age: 64 Year
  Sex: Male

DRUGS (3)
  1. NIFEDIPINE [Suspect]
     Active Substance: NIFEDIPINE
     Indication: Drug abuse
  2. TENAMFETAMINE [Suspect]
     Active Substance: TENAMFETAMINE
     Indication: Drug abuse
  3. EPHEDRINE [Suspect]
     Active Substance: EPHEDRINE
     Indication: Drug abuse

REACTIONS (1)
  - Drug abuse [Fatal]
